FAERS Safety Report 5118814-1 (Version None)
Quarter: 2006Q4

REPORT INFORMATION
  Report Type: 
  Country: None (occurrence: None)
  Receive Date: 20061002
  Receipt Date: 20060927
  Transmission Date: 20070319
  Serious: Yes (Death)
  Sender: FDA-Public Use
  Company Number: US-JNJFOC-20060906736

PATIENT
  Sex: Female

DRUGS (4)
  1. FLEXERIL [Suspect]
     Indication: DRUG USE FOR UNKNOWN INDICATION
     Route: 048
  2. OXYCONTIN [Concomitant]
  3. AMBIEN [Concomitant]
  4. PHENERGAN [Concomitant]

REACTIONS (1)
  - DEATH [None]
